FAERS Safety Report 6739650-6 (Version None)
Quarter: 2010Q2

REPORT INFORMATION
  Report Type: 
  Country: None (occurrence: None)
  Receive Date: 20100525
  Receipt Date: 20100406
  Transmission Date: 20101027
  Serious: Yes (Hospitalization)
  Sender: FDA-Public Use
  Company Number: FR-ROCHE-695372

PATIENT
  Age: 58 Year
  Sex: Male

DRUGS (3)
  1. TAMIFLU [Suspect]
     Indication: DRUG USE FOR UNKNOWN INDICATION
     Route: 048
     Dates: start: 20091217, end: 20091217
  2. PYOSTACINE [Suspect]
     Indication: DRUG USE FOR UNKNOWN INDICATION
     Route: 048
     Dates: start: 20091217, end: 20091217
  3. PANDEMRIX [Suspect]
     Indication: DRUG USE FOR UNKNOWN INDICATION
     Dosage: FORM: INJECTION
     Route: 030
     Dates: start: 20091216, end: 20091216

REACTIONS (2)
  - TACHYCARDIA [None]
  - URTICARIA [None]
